FAERS Safety Report 8252246-2 (Version None)
Quarter: 2012Q2

REPORT INFORMATION
  Report Type: 
  Country: None (occurrence: None)
  Receive Date: 20120402
  Receipt Date: 20110928
  Transmission Date: 20120825
  Serious: No
  Sender: FDA-Public Use
  Company Number: US-ABBOTT-11P-163-0858904-00

PATIENT
  Sex: Male
  Weight: 79.45 kg

DRUGS (7)
  1. ANDROGEL [Suspect]
  2. AMBIEN [Concomitant]
     Indication: INSOMNIA
  3. ANDROGEL [Suspect]
  4. LISINOPRIL [Concomitant]
     Indication: HYPERTENSION
  5. ANDROGEL [Suspect]
     Indication: BLOOD TESTOSTERONE DECREASED
     Dates: start: 20110601
  6. ANDROGEL [Suspect]
  7. ANDROGEL [Suspect]
     Dates: end: 20110927

REACTIONS (2)
  - MICTURITION URGENCY [None]
  - DYSURIA [None]
